FAERS Safety Report 7693603-2 (Version None)
Quarter: 2011Q3

REPORT INFORMATION
  Report Type: 
  Country: None (occurrence: None)
  Receive Date: 20110819
  Receipt Date: 20110814
  Transmission Date: 20111222
  Serious: Yes (Death)
  Sender: FDA-Public Use
  Company Number: PHHY2011MX72811

PATIENT
  Sex: Female

DRUGS (1)
  1. DIOVAN HCT [Suspect]
     Indication: HYPERTENSION
     Dosage: 3 TABLETS OF 160 MG VALSARTAN AND 12.5 MG OF HYDROCHLOROTHIAZIDE, DAILY

REACTIONS (1)
  - DEATH [None]
